FAERS Safety Report 4669226-6 (Version None)
Quarter: 2005Q2

REPORT INFORMATION
  Report Type: 
  Country: None (occurrence: None)
  Receive Date: 20050519
  Receipt Date: 20050505
  Transmission Date: 20051028
  Serious: No
  Sender: FDA-Public Use
  Company Number: 11048

PATIENT

DRUGS (1)
  1. METHOTREXATE [Suspect]
     Dosage: 50 MG FREQ IT
     Route: 037
     Dates: end: 20050505

REACTIONS (4)
  - HYPERTENSION [None]
  - PAIN [None]
  - PARAESTHESIA [None]
  - RESPIRATORY DISORDER [None]
